FAERS Safety Report 7093669-7 (Version None)
Quarter: 2010Q4

REPORT INFORMATION
  Report Type: 
  Country: None (occurrence: None)
  Receive Date: 20101110
  Receipt Date: 20101101
  Transmission Date: 20110411
  Serious: Yes (Other)
  Sender: FDA-Public Use
  Company Number: US-US-EMD SERONO, INC.-7025571

PATIENT
  Sex: Male

DRUGS (5)
  1. REBIF [Suspect]
     Indication: MULTIPLE SCLEROSIS
     Dates: start: 20040101, end: 20060101
  2. REBIF [Suspect]
     Route: 058
     Dates: start: 20100315
  3. UNSPECIFIED ANTIDEPRESSANT [Concomitant]
     Indication: PROPHYLAXIS
  4. HYDROCODONE [Concomitant]
  5. UNSPECIFIED CHEMOTHERAPY [Concomitant]
     Indication: MULTIPLE SCLEROSIS

REACTIONS (2)
  - INFLUENZA LIKE ILLNESS [None]
  - THROMBOSIS [None]
